FAERS Safety Report 7878294-X (Version None)
Quarter: 2011Q4

REPORT INFORMATION
  Report Type: 
  Country: None (occurrence: None)
  Receive Date: 20111101
  Receipt Date: 20111019
  Transmission Date: 20120403
  Serious: Yes (Other)
  Sender: FDA-Public Use
  Company Number: US-JNJFOC-20111010442

PATIENT
  Sex: Female
  Weight: 65.77 kg

DRUGS (8)
  1. DURAGESIC-100 [Suspect]
     Indication: FIBROMYALGIA
     Route: 062
     Dates: start: 20060101
  2. DURAGESIC-100 [Suspect]
     Route: 062
     Dates: end: 20110101
  3. DIAZEPAM [Concomitant]
     Indication: ANXIETY
     Route: 048
     Dates: start: 20110101
  4. DURAGESIC-100 [Suspect]
     Route: 062
     Dates: start: 20110101
  5. FENTANYL-100 [Suspect]
     Indication: FIBROMYALGIA
     Route: 062
  6. LORAZEPAM [Concomitant]
     Indication: ANXIETY
     Route: 048
     Dates: start: 20060101, end: 20110101
  7. AMBIEN [Concomitant]
     Indication: SLEEP DISORDER
     Route: 048
     Dates: start: 19990101
  8. ADDERALL 5 [Concomitant]
     Indication: ENERGY INCREASED
     Route: 048
     Dates: start: 20060101

REACTIONS (9)
  - WITHDRAWAL SYNDROME [None]
  - MENTAL STATUS CHANGES [None]
  - ABNORMAL BEHAVIOUR [None]
  - BEDRIDDEN [None]
  - THERAPY CESSATION [None]
  - CONDITION AGGRAVATED [None]
  - ASTHENIA [None]
  - PERSONALITY CHANGE [None]
  - DRUG INEFFECTIVE [None]
